FAERS Safety Report 6252680-6 (Version None)
Quarter: 2009Q3

REPORT INFORMATION
  Report Type: 
  Country: None (occurrence: None)
  Receive Date: 20090701
  Receipt Date: 20090619
  Transmission Date: 20100115
  Serious: Yes (Other)
  Sender: FDA-Public Use
  Company Number: PHHY2009JP24415

PATIENT
  Age: 56 Year
  Sex: Female

DRUGS (1)
  1. TEGRETOL [Suspect]
     Dosage: 200 MG, QD
     Route: 048
     Dates: start: 20080801, end: 20080801

REACTIONS (3)
  - LIVER DISORDER [None]
  - OCULOMUCOCUTANEOUS SYNDROME [None]
  - STEVENS-JOHNSON SYNDROME [None]
